FAERS Safety Report 6460256-0 (Version None)
Quarter: 2009Q4

REPORT INFORMATION
  Report Type: 
  Country: None (occurrence: None)
  Receive Date: 20091130
  Receipt Date: 20091116
  Transmission Date: 20100525
  Serious: Yes (Other)
  Sender: FDA-Public Use
  Company Number: PHEH2009US16008

PATIENT
  Sex: Female

DRUGS (1)
  1. DIOVAN HCT [Suspect]
     Dosage: 80/12.5 MG
     Dates: start: 20091113

REACTIONS (3)
  - AURICULAR SWELLING [None]
  - HEADACHE [None]
  - PHARYNGEAL OEDEMA [None]
